FAERS Safety Report 19419469 (Version 1)
Quarter: 2021Q2

REPORT INFORMATION
  Report Type: Spontaneous
  Country: DE (occurrence: DE)
  Receive Date: 20210615
  Receipt Date: 20210615
  Transmission Date: 20210717
  Serious: Yes (Other)
  Sender: FDA-Public Use
  Company Number: DE-ASTRAZENECA-2021A494575

PATIENT
  Age: 57 Year
  Sex: Female

DRUGS (5)
  1. DURVALUMAB. [Suspect]
     Active Substance: DURVALUMAB
     Indication: NON-SMALL CELL LUNG CANCER STAGE III
     Dosage: 10.0MG/KG UNKNOWN
     Route: 042
     Dates: start: 20201006, end: 202101
  2. DURVALUMAB. [Suspect]
     Active Substance: DURVALUMAB
     Indication: NON-SMALL CELL LUNG CANCER STAGE III
     Dosage: UNKNOWN
     Route: 042
  3. RADIOTHERAPY [Concomitant]
     Active Substance: RADIATION THERAPY
     Dosage: 3 X CYCLE
  4. PREDNISONE. [Concomitant]
     Active Substance: PREDNISONE
     Dosage: 1 MG/KG, 6?8 WEEKS
  5. CISPLATIN/VINORELBINE [Concomitant]
     Dosage: 3 X CYCLE

REACTIONS (4)
  - Immune-mediated lung disease [Recovered/Resolved]
  - Dyspnoea [Recovered/Resolved]
  - Lung infiltration [Recovered/Resolved]
  - Cough [Recovered/Resolved]

NARRATIVE: CASE EVENT DATE: 202012
